FAERS Safety Report 14693763 (Version 4)
Quarter: 2018Q2

REPORT INFORMATION
  Report Type: Report from Study
  Country: CA (occurrence: CA)
  Receive Date: 20180329
  Receipt Date: 20180620
  Transmission Date: 20180711
  Serious: Yes (Other)
  Sender: FDA-Public Use
  Company Number: PHHY2013CA137288

PATIENT
  Age: 81 Year
  Sex: Female

DRUGS (6)
  1. CODEINE PHOSPHATE [Suspect]
     Active Substance: CODEINE PHOSPHATE
     Indication: PRODUCT USED FOR UNKNOWN INDICATION
     Route: 065
  2. SANDOSTATIN LAR DEPOT [Suspect]
     Active Substance: OCTREOTIDE ACETATE
     Indication: METASTASES TO LIVER
     Dosage: 60 MG, EVERY FOUR WEEKS
     Route: 030
     Dates: start: 20140520
  3. SANDOSTATIN LAR DEPOT [Suspect]
     Active Substance: OCTREOTIDE ACETATE
     Dosage: 30 MG, QMO (EVERY 4 WEEKS)
     Route: 058
     Dates: start: 20150126
  4. SANDOSTATIN LAR DEPOT [Suspect]
     Active Substance: OCTREOTIDE ACETATE
     Indication: NEUROENDOCRINE TUMOUR OF THE LUNG
     Dosage: 30 MG, QMO (EVERY 4 WEEKS)
     Route: 030
     Dates: start: 20131202
  5. SANDOSTATIN [Suspect]
     Active Substance: OCTREOTIDE ACETATE
     Indication: LUNG NEOPLASM
     Dosage: UNK UG, ONCE/SINGLE
     Route: 058
     Dates: start: 20131122, end: 20131122
  6. MORPHINE [Suspect]
     Active Substance: MORPHINE
     Indication: PRODUCT USED FOR UNKNOWN INDICATION
     Route: 065

REACTIONS (19)
  - Lower respiratory tract infection [Unknown]
  - Metastases to eye [Unknown]
  - Metastasis [Unknown]
  - Blood pressure diastolic increased [Unknown]
  - Hypokinesia [Unknown]
  - Pain [Unknown]
  - Neoplasm progression [Unknown]
  - Respiratory rate increased [Unknown]
  - Malaise [Unknown]
  - Chills [Unknown]
  - Cough [Recovered/Resolved]
  - Dyspnoea [Unknown]
  - Malignant neoplasm progression [Unknown]
  - Lethargy [Unknown]
  - Pyrexia [Unknown]
  - Diplopia [Unknown]
  - Blindness [Unknown]
  - Blood pressure systolic increased [Unknown]
  - Abdominal pain upper [Recovered/Resolved]

NARRATIVE: CASE EVENT DATE: 20131122
